FAERS Safety Report 10073052 (Version 1)
Quarter: 2014Q2

REPORT INFORMATION
  Report Type: Spontaneous
  Country: GB (occurrence: GB)
  Receive Date: 20140411
  Receipt Date: 20140411
  Transmission Date: 20141212
  Serious: Yes (Other)
  Sender: FDA-Public Use
  Company Number: GB-ASTRAZENECA-2014SE23325

PATIENT
  Sex: 0

DRUGS (1)
  1. ROPIVACAINE [Suspect]
     Indication: LOCAL ANAESTHESIA

REACTIONS (1)
  - Atrioventricular block complete [Unknown]
